FAERS Safety Report 13835324 (Version 3)
Quarter: 2017Q3

REPORT INFORMATION
  Report Type: Report from Study
  Country: US (occurrence: US)
  Receive Date: 20170804
  Receipt Date: 20170913
  Transmission Date: 20171127
  Serious: Yes (Other)
  Sender: FDA-Public Use
  Company Number: US-PFIZER INC-2017056846

PATIENT
  Age: 63 Year
  Sex: Female

DRUGS (3)
  1. IBRANCE [Suspect]
     Active Substance: PALBOCICLIB
     Dosage: 125 MG, 1X/DAY, (ONCE A DAY)
     Route: 048
     Dates: start: 20161226, end: 20170117
  2. IBRANCE [Suspect]
     Active Substance: PALBOCICLIB
     Dosage: 75 MG, 1X/DAY
     Route: 048
     Dates: start: 20170726
  3. IBRANCE [Suspect]
     Active Substance: PALBOCICLIB
     Indication: BREAST CANCER
     Dosage: 100 MG, 1X/DAY
     Route: 048
     Dates: start: 20160721, end: 20160725

REACTIONS (19)
  - Vision blurred [Unknown]
  - Tumour marker increased [Unknown]
  - Diarrhoea haemorrhagic [Unknown]
  - Hypoaesthesia oral [Unknown]
  - Hypoaesthesia [Unknown]
  - Feeling cold [Unknown]
  - Headache [Not Recovered/Not Resolved]
  - Syncope [Unknown]
  - Fatigue [Not Recovered/Not Resolved]
  - Skin exfoliation [Unknown]
  - Dysgeusia [Unknown]
  - Weight increased [Unknown]
  - Lacrimation increased [Unknown]
  - Dizziness [Unknown]
  - Night sweats [Unknown]
  - White blood cell count decreased [Not Recovered/Not Resolved]
  - Burning sensation [Unknown]
  - Nausea [Not Recovered/Not Resolved]
  - International normalised ratio increased [Unknown]

NARRATIVE: CASE EVENT DATE: 2017
